FAERS Safety Report 18622999 (Version 1)
Quarter: 2020Q4

REPORT INFORMATION
  Report Type: Spontaneous
  Country: GB (occurrence: GB)
  Receive Date: 20201216
  Receipt Date: 20201216
  Transmission Date: 20210114
  Serious: Yes (Other)
  Sender: FDA-Public Use
  Company Number: GB-BAYER-2020-270473

PATIENT
  Age: 20 Year
  Sex: Female

DRUGS (1)
  1. MICROGYNON 30 [Suspect]
     Active Substance: ETHINYL ESTRADIOL\LEVONORGESTREL ACETATE
     Dosage: UNK
     Route: 048
     Dates: start: 202007

REACTIONS (4)
  - Adverse event [Not Recovered/Not Resolved]
  - Stress [None]
  - Gastric disorder [Not Recovered/Not Resolved]
  - Coeliac disease [Not Recovered/Not Resolved]

NARRATIVE: CASE EVENT DATE: 2020
